FAERS Safety Report 4487710-5 (Version None)
Quarter: 2004Q4

REPORT INFORMATION
  Report Type: 
  Country: None (occurrence: None)
  Receive Date: 20041027
  Receipt Date: 20041027
  Transmission Date: 20050328
  Serious: Yes (Hospitalization)
  Sender: FDA-Public Use
  Company Number: None

PATIENT
  Age: 61 Year
  Sex: Male
  Weight: 74.8435 kg

DRUGS (8)
  1. PHENYTOIN [Suspect]
     Indication: CONVULSION
     Dosage: 100 MG 2 BID
     Dates: start: 19960316
  2. CLONIDINE HCL [Concomitant]
  3. FOSINOPRIL SODIUM [Concomitant]
  4. LOVASTATIN [Concomitant]
  5. FUROSEMIDE [Concomitant]
  6. GABAPENTIN [Concomitant]
  7. VERAPAMIL [Concomitant]
  8. SERTRALINE HCL [Concomitant]

REACTIONS (3)
  - CONFUSIONAL STATE [None]
  - FALL [None]
  - SPEECH DISORDER [None]
